FAERS Safety Report 10772233 (Version 3)
Quarter: 2015Q1

REPORT INFORMATION
  Report Type: Spontaneous
  Country: BR (occurrence: BR)
  Receive Date: 20150206
  Receipt Date: 20150313
  Transmission Date: 20150721
  Serious: Yes (Hospitalization, Disabling, Other)
  Sender: FDA-Public Use
  Company Number: BR-ASTRAZENECA-2015SE06038

PATIENT
  Age: 945 Month
  Sex: Female

DRUGS (10)
  1. IRESSA [Suspect]
     Active Substance: GEFITINIB
     Indication: METASTASES TO CENTRAL NERVOUS SYSTEM
     Route: 048
     Dates: start: 20140516, end: 201411
  2. IRESSA [Suspect]
     Active Substance: GEFITINIB
     Indication: LUNG NEOPLASM MALIGNANT
     Route: 048
     Dates: start: 201411, end: 20150104
  3. SELOZOK [Suspect]
     Active Substance: METOPROLOL SUCCINATE
     Indication: HYPERTENSION
     Route: 048
  4. IRESSA [Suspect]
     Active Substance: GEFITINIB
     Indication: LUNG NEOPLASM MALIGNANT
     Route: 048
     Dates: start: 20140516, end: 201411
  5. HIDANTAL [Concomitant]
     Active Substance: PHENYTOIN SODIUM
     Indication: SEIZURE
     Dosage: THREE TIMES A DAY
     Dates: start: 201501
  6. DECADRON [Concomitant]
     Active Substance: DEXAMETHASONE
     Indication: BRAIN OEDEMA
     Dosage: THREE TIMES A DAY
     Dates: start: 201403
  7. IRESSA [Suspect]
     Active Substance: GEFITINIB
     Indication: METASTASES TO CENTRAL NERVOUS SYSTEM
     Route: 048
     Dates: start: 201411, end: 20150104
  8. LOSARTAN [Concomitant]
     Active Substance: LOSARTAN
     Indication: HYPERTENSION
     Dosage: DAILY
  9. AMLODIPINE [Concomitant]
     Active Substance: AMLODIPINE BESYLATE
     Indication: HYPERTENSION
  10. HIDANTAL [Concomitant]
     Active Substance: PHENYTOIN SODIUM
     Indication: SEIZURE
     Dosage: TWO TIMES A DAY
     Dates: start: 201403, end: 201501

REACTIONS (15)
  - Cerebrovascular accident [Not Recovered/Not Resolved]
  - Hypophagia [Not Recovered/Not Resolved]
  - Lung neoplasm malignant [Not Recovered/Not Resolved]
  - Dizziness [Not Recovered/Not Resolved]
  - Apathy [Unknown]
  - Circumstance or information capable of leading to medication error [Unknown]
  - Seizure [Recovered/Resolved]
  - Anaemia [Recovered/Resolved]
  - Metastases to central nervous system [Not Recovered/Not Resolved]
  - Gait disturbance [Not Recovered/Not Resolved]
  - Malignant neoplasm progression [Not Recovered/Not Resolved]
  - Urinary tract infection [Recovered/Resolved]
  - Dementia Alzheimer^s type [Unknown]
  - Brain oedema [Unknown]
  - Weight decreased [Unknown]

NARRATIVE: CASE EVENT DATE: 201401
